FAERS Safety Report 23822502 (Version 3)
Quarter: 2024Q2

REPORT INFORMATION
  Report Type: Spontaneous
  Country: US (occurrence: US)
  Receive Date: 20240506
  Receipt Date: 20240617
  Transmission Date: 20240716
  Serious: No
  Sender: FDA-Public Use
  Company Number: US-APELLIS-APL-2024-004202

PATIENT

DRUGS (3)
  1. SYFOVRE [Suspect]
     Active Substance: PEGCETACOPLAN
     Indication: Dry age-related macular degeneration
     Dosage: OU
     Route: 031
     Dates: start: 20231019, end: 20231019
  2. SYFOVRE [Suspect]
     Active Substance: PEGCETACOPLAN
     Dosage: OU
     Route: 031
     Dates: start: 20231116, end: 20231116
  3. SYFOVRE [Suspect]
     Active Substance: PEGCETACOPLAN
     Route: 031

REACTIONS (2)
  - Malaise [Recovered/Resolved]
  - Blood pressure fluctuation [Recovered/Resolved]

NARRATIVE: CASE EVENT DATE: 20231001
